FAERS Safety Report 5907202-3 (Version None)
Quarter: 2008Q4

REPORT INFORMATION
  Report Type: 
  Country: None (occurrence: None)
  Receive Date: 20081003
  Receipt Date: 20080923
  Transmission Date: 20090506
  Serious: Yes (Hospitalization, Other)
  Sender: FDA-Public Use
  Company Number: US-ROCHE-582182

PATIENT
  Sex: Female
  Weight: 47.2 kg

DRUGS (3)
  1. PEGASYS [Suspect]
     Indication: HEPATITIS C
     Route: 058
     Dates: start: 20070904
  2. RIBAVIRIN [Suspect]
     Indication: HEPATITIS C
     Route: 048
     Dates: start: 20070904
  3. PROCRIT [Concomitant]
     Indication: ANAEMIA
     Dosage: FORM: FLUIDS
     Route: 058
     Dates: start: 20080403

REACTIONS (2)
  - MULTIPLE SCLEROSIS [None]
  - NEUROPATHY PERIPHERAL [None]
